FAERS Safety Report 9224907 (Version 1)
Quarter: 2013Q2

REPORT INFORMATION
  Report Type: Spontaneous
  Country: DE (occurrence: DE)
  Receive Date: 20130411
  Receipt Date: 20130411
  Transmission Date: 20140414
  Serious: Yes (Life-Threatening, Hospitalization)
  Sender: FDA-Public Use
  Company Number: DE-PFIZER INC-2013111260

PATIENT
  Age: 60 Year
  Sex: Female
  Weight: 63 kg

DRUGS (2)
  1. CELEBREX [Suspect]
     Indication: PAIN
     Dosage: 200, 2 X 1
     Route: 048
     Dates: start: 20120228, end: 20120305
  2. TARGIN [Suspect]
     Indication: PAIN
     Dosage: 10/5 2 X 1
     Route: 048
     Dates: start: 20120228

REACTIONS (2)
  - Procedural haemorrhage [Recovered/Resolved]
  - Post procedural haemorrhage [Recovered/Resolved]
